FAERS Safety Report 6722352-X (Version None)
Quarter: 2010Q2

REPORT INFORMATION
  Report Type: 
  Country: None (occurrence: None)
  Receive Date: 20100512
  Receipt Date: 20100507
  Transmission Date: 20101027
  Serious: Yes (Other)
  Sender: FDA-Public Use
  Company Number: US-BRISTOL-MYERS SQUIBB COMPANY-15071921

PATIENT
  Age: 62 Year
  Sex: Female

DRUGS (2)
  1. ONGLYZA [Suspect]
     Indication: DIABETES MELLITUS
     Dosage: TAKEN MORE THAN 3 TO 4 YEARS 1 TABLET
     Route: 048
     Dates: start: 20100129, end: 20100411
  2. PROPRANOLOL [Concomitant]
     Indication: MITRAL VALVE PROLAPSE

REACTIONS (1)
  - DEPRESSION [None]
